FAERS Safety Report 10361691 (Version 1)
Quarter: 2014Q3

REPORT INFORMATION
  Report Type: Spontaneous
  Country: FR (occurrence: FR)
  Receive Date: 20140805
  Receipt Date: 20140805
  Transmission Date: 20150326
  Serious: Yes (Hospitalization)
  Sender: FDA-Public Use
  Company Number: FR-ASTRAZENECA-2014SE55163

PATIENT
  Age: 26695 Day
  Sex: Female

DRUGS (8)
  1. CERIS [Concomitant]
     Active Substance: TROSPIUM CHLORIDE
     Route: 048
  2. PREVISCAN [Concomitant]
     Active Substance: FLUINDIONE
     Indication: PHLEBITIS
     Dosage: 0.75 DF EVERY EVEN DAY AND 0.5 DF EVERY ODD DAY
     Route: 048
  3. LEVOTHYROX [Concomitant]
     Active Substance: LEVOTHYROXINE
     Indication: HYPOTHYROIDISM
     Route: 048
  4. PRETERAX [Concomitant]
     Active Substance: INDAPAMIDE\PERINDOPRIL
     Indication: HYPERTENSION
     Dosage: 2MG/0.625MG, ONE DOSAGE FORM DAILY
     Route: 048
  5. MONO TILDIEM [Concomitant]
     Active Substance: DILTIAZEM HYDROCHLORIDE
     Indication: HYPERTENSION
     Route: 048
  6. TRANSIPEG [Concomitant]
     Active Substance: POLYETHYLENE GLYCOL 3350
     Route: 048
  7. XEROQUEL [Suspect]
     Active Substance: QUETIAPINE FUMARATE
     Indication: DEPRESSION
     Route: 048
     Dates: end: 20140415
  8. PREVISCAN [Concomitant]
     Active Substance: FLUINDIONE
     Indication: PHLEBITIS
     Route: 048

REACTIONS (4)
  - Colitis psychogenic [Unknown]
  - Neutropenia [Not Recovered/Not Resolved]
  - Lymphopenia [Not Recovered/Not Resolved]
  - Depression [Unknown]

NARRATIVE: CASE EVENT DATE: 20140331
